FAERS Safety Report 12710433 (Version 9)
Quarter: 2018Q2

REPORT INFORMATION
  Report Type: Spontaneous
  Country: US (occurrence: US)
  Receive Date: 20160902
  Receipt Date: 20180420
  Transmission Date: 20180711
  Serious: Yes (Other)
  Sender: FDA-Public Use
  Company Number: PHEH2016US022293

PATIENT
  Age: 33 Year
  Sex: Female
  Weight: 79 kg

DRUGS (1)
  1. ONDANSETRON [Suspect]
     Active Substance: ONDANSETRON
     Indication: VOMITING IN PREGNANCY
     Dosage: 4 MG, Q4H
     Route: 048
     Dates: start: 201202, end: 201206

REACTIONS (24)
  - Premature delivery [Unknown]
  - Pelvic pain [Unknown]
  - Abdominal pain upper [Unknown]
  - Ischaemic stroke [Unknown]
  - Emotional distress [Unknown]
  - Coagulopathy [Unknown]
  - Dyspnoea [Unknown]
  - Ectopic pregnancy [Unknown]
  - Hypertension [Unknown]
  - Maternal exposure during pregnancy [Unknown]
  - Abdominal pain [Unknown]
  - Deep vein thrombosis [Unknown]
  - Pre-eclampsia [Unknown]
  - Cerebrovascular accident [Unknown]
  - Product use in unapproved indication [Unknown]
  - Vaginal haemorrhage [Unknown]
  - Chest pain [Unknown]
  - Transient ischaemic attack [Unknown]
  - Injury [Unknown]
  - Back pain [Unknown]
  - Urinary tract infection [Unknown]
  - Cholelithiasis [Unknown]
  - Appendicitis [Unknown]
  - Ovarian cyst [Unknown]

NARRATIVE: CASE EVENT DATE: 20120830
